FAERS Safety Report 10229196 (Version 2)
Quarter: 2014Q2

REPORT INFORMATION
  Report Type: Spontaneous
  Country: US (occurrence: US)
  Receive Date: 20140611
  Receipt Date: 20140611
  Transmission Date: 20141212
  Serious: No
  Sender: FDA-Public Use
  Company Number: US-ASTRAZENECA-2012SE53113

PATIENT
  Age: 44 Year
  Sex: Male
  Weight: 122.5 kg

DRUGS (12)
  1. OMEPRAZOLE [Suspect]
     Route: 048
  2. NEXIUM [Suspect]
     Indication: GASTROOESOPHAGEAL REFLUX DISEASE
     Route: 048
     Dates: start: 2004, end: 2006
  3. NEXIUM [Suspect]
     Indication: BARRETT^S OESOPHAGUS
     Route: 048
     Dates: start: 2004, end: 2006
  4. NEXIUM [Suspect]
     Indication: GASTROOESOPHAGEAL REFLUX DISEASE
     Route: 048
     Dates: start: 2009
  5. NEXIUM [Suspect]
     Indication: BARRETT^S OESOPHAGUS
     Route: 048
     Dates: start: 2009
  6. CHANTIX [Suspect]
     Route: 065
  7. LOSARTAN POT [Concomitant]
     Indication: HYPERTENSION
     Route: 048
     Dates: start: 2013
  8. TRIAMT-HCTZ [Concomitant]
     Indication: HYPERTENSION
     Route: 048
     Dates: start: 2012
  9. BUSPIRONE HCL [Concomitant]
     Indication: ANXIETY
     Dosage: 5MG PRN TID
     Route: 048
     Dates: start: 2013
  10. PROZAC [Concomitant]
     Indication: ANXIETY
     Route: 048
     Dates: start: 201311
  11. PROZAC [Concomitant]
     Indication: MOOD SWINGS
     Route: 048
     Dates: start: 201311
  12. ASPIRIN [Concomitant]
     Indication: ANTICOAGULANT THERAPY
     Route: 048
     Dates: start: 2007

REACTIONS (12)
  - Throat irritation [Unknown]
  - Sleep disorder due to a general medical condition [Unknown]
  - Throat tightness [Recovered/Resolved]
  - Barrett^s oesophagus [Unknown]
  - Gastrooesophageal reflux disease [Unknown]
  - Diverticulitis [Unknown]
  - Weight decreased [Unknown]
  - Adverse event [Unknown]
  - Weight increased [Unknown]
  - Abdominal pain upper [Unknown]
  - Drug ineffective [Unknown]
  - Drug dose omission [Not Recovered/Not Resolved]
